FAERS Safety Report 19705394 (Version 1)
Quarter: 2021Q3

REPORT INFORMATION
  Report Type: Spontaneous
  Country: US (occurrence: US)
  Receive Date: 20210816
  Receipt Date: 20210816
  Transmission Date: 20211014
  Serious: Yes (Disabling)
  Sender: FDA-Public Use
  Company Number: None

PATIENT
  Age: 21 Year
  Sex: Female
  Weight: 65.25 kg

DRUGS (5)
  1. DESONIDE CRAM [Concomitant]
  2. CURCUMIN [Concomitant]
     Active Substance: CURCUMIN
  3. TRIAMCINOLONE ACETONIDE OINTMENT [Concomitant]
     Active Substance: TRIAMCINOLONE ACETONIDE
  4. VITAMIN D [Concomitant]
     Active Substance: VITAMIN D NOS
  5. NEUTROGENA ULTRA SHEER DRY TOUCH SUNSCREEN BROAD SPECTRUM SPF100 PLUS [Suspect]
     Active Substance: AVOBENZONE\HOMOSALATE\OCTISALATE\OCTOCRYLENE\OXYBENZONE
     Indication: PROPHYLAXIS AGAINST SOLAR RADIATION
     Route: 061
     Dates: start: 20210601, end: 20210701

REACTIONS (1)
  - Drug hypersensitivity [None]

NARRATIVE: CASE EVENT DATE: 20210701
